FAERS Safety Report 14902316 (Version 3)
Quarter: 2018Q2

REPORT INFORMATION
  Report Type: Report from Study
  Country: CA (occurrence: CA)
  Receive Date: 20180516
  Receipt Date: 20180608
  Transmission Date: 20180711
  Serious: Yes (Hospitalization, Other)
  Sender: FDA-Public Use
  Company Number: CA-SHIRE-CA201818470

PATIENT

DRUGS (1)
  1. ELAPRASE [Suspect]
     Active Substance: IDURSULFASE
     Indication: PRODUCT USED FOR UNKNOWN INDICATION
     Dosage: 24 MG, 1X/WEEK
     Route: 042

REACTIONS (3)
  - Pneumonia aspiration [Recovering/Resolving]
  - Dependence on respirator [Recovering/Resolving]
  - Vomiting [Recovering/Resolving]
